FAERS Safety Report 5164492-5 (Version None)
Quarter: 2006Q4

REPORT INFORMATION
  Report Type: 
  Country: None (occurrence: None)
  Receive Date: 20061124
  Receipt Date: 20061120
  Transmission Date: 20070319
  Serious: Yes (Other)
  Sender: FDA-Public Use
  Company Number: 2006SP001222

PATIENT
  Age: 65 Year
  Sex: Female

DRUGS (7)
  1. PEG-INTRON [Suspect]
     Indication: HEPATITIS C
     Dates: start: 20060105
  2. REBETOL [Suspect]
     Indication: HEPATITIS C
     Dates: start: 20060105, end: 20060830
  3. ACTOS [Concomitant]
  4. DARVON COMPOUND [Concomitant]
  5. FOLIC ACID [Concomitant]
  6. GLIPIZIDE [Concomitant]
  7. METOPROLOL TARTRATE [Concomitant]

REACTIONS (10)
  - DEHYDRATION [None]
  - DRUG INEFFECTIVE [None]
  - DRY THROAT [None]
  - FATIGUE [None]
  - HAEMOGLOBIN DECREASED [None]
  - PLATELET COUNT DECREASED [None]
  - PRURITUS [None]
  - RASH GENERALISED [None]
  - URGE INCONTINENCE [None]
  - WHITE BLOOD CELL COUNT DECREASED [None]
